FAERS Safety Report 7058311-X (Version None)
Quarter: 2010Q4

REPORT INFORMATION
  Report Type: 
  Country: None (occurrence: None)
  Receive Date: 20101022
  Receipt Date: 20101019
  Transmission Date: 20110411
  Serious: No
  Sender: FDA-Public Use
  Company Number: US-TEVA-252318USA

PATIENT
  Sex: Female

DRUGS (4)
  1. ALBUTEROL SULFATE AUTOHALER [Suspect]
     Indication: BRONCHITIS
     Route: 055
     Dates: start: 20101014, end: 20101017
  2. BUPROPION [Concomitant]
  3. DIAZEPAM [Concomitant]
  4. VARDENAFIL HYDROCHLORIDE (LEVITRA) [Concomitant]

REACTIONS (2)
  - BRONCHITIS [None]
  - LARYNGITIS [None]
